FAERS Safety Report 20054847 (Version 4)
Quarter: 2021Q4

REPORT INFORMATION
  Report Type: Report from Study
  Country: US (occurrence: US)
  Receive Date: 20211110
  Receipt Date: 20211220
  Transmission Date: 20220303
  Serious: Yes (Hospitalization, Other)
  Sender: FDA-Public Use
  Company Number: US-NOVARTISTESTPH-NVSC2021US256187

PATIENT
  Sex: Female

DRUGS (1)
  1. ILARIS [Suspect]
     Active Substance: CANAKINUMAB
     Indication: Juvenile idiopathic arthritis
     Dosage: 200 MG, QMO
     Route: 058
     Dates: start: 20211002, end: 20211106

REACTIONS (3)
  - Haemophagocytic lymphohistiocytosis [Unknown]
  - Incorrect dose administered [Unknown]
  - Drug ineffective [Unknown]
